FAERS Safety Report 14165272 (Version 1)
Quarter: 2017Q4

REPORT INFORMATION
  Report Type: Spontaneous
  Country: US (occurrence: US)
  Receive Date: 20171107
  Receipt Date: 20171107
  Transmission Date: 20180321
  Serious: Yes (Other)
  Sender: FDA-Public Use
  Company Number: US-ELI_LILLY_AND_COMPANY-US201710011363

PATIENT
  Age: 66 Year
  Sex: Male

DRUGS (5)
  1. PREDNISONE. [Suspect]
     Active Substance: PREDNISONE
     Indication: COUGH
     Dosage: UNK UNK, UNKNOWN
     Route: 065
  2. HUMULIN 70/30 [Suspect]
     Active Substance: INSULIN HUMAN
     Dosage: 44 U, EACH MORNING
     Route: 065
     Dates: start: 2017
  3. HUMULIN 70/30 [Suspect]
     Active Substance: INSULIN HUMAN
     Dosage: 20 U, DAILY (AT NIGHT)
     Route: 065
     Dates: start: 2017
  4. HUMULIN 70/30 [Suspect]
     Active Substance: INSULIN HUMAN
     Indication: TYPE 2 DIABETES MELLITUS
     Dosage: 44 U, EACH MORNING
     Route: 065
     Dates: start: 2017
  5. HUMULIN 70/30 [Suspect]
     Active Substance: INSULIN HUMAN
     Dosage: 20 U, DAILY (AT NIGHT)
     Route: 065
     Dates: start: 2017

REACTIONS (14)
  - Gait disturbance [Unknown]
  - Mobility decreased [Unknown]
  - Chest pain [Unknown]
  - Fluid retention [Unknown]
  - Drug dose omission [Unknown]
  - Cough [Unknown]
  - Dyspnoea [Unknown]
  - Product storage error [Unknown]
  - Blood glucose increased [Unknown]
  - Blood iron decreased [Unknown]
  - Atrial fibrillation [Unknown]
  - Blood glucose increased [Unknown]
  - Peripheral swelling [Unknown]
  - Pyrexia [Unknown]

NARRATIVE: CASE EVENT DATE: 2017
